FAERS Safety Report 9170681 (Version 1)
Quarter: 2013Q1

REPORT INFORMATION
  Report Type: Spontaneous
  Country: US (occurrence: None)
  Receive Date: 20130311
  Receipt Date: 20130311
  Transmission Date: 20140127
  Serious: Yes (Other)
  Sender: FDA-Public Use
  Company Number: ENTC2013-0075

PATIENT
  Sex: Male

DRUGS (1)
  1. STALEVO (50 MG) (LEVODOPA. CARBIDOPA. ENTACAPONE) [Suspect]

REACTIONS (1)
  - Mobility decreased [None]
